FAERS Safety Report 6692674-X (Version None)
Quarter: 2010Q2

REPORT INFORMATION
  Report Type: 
  Country: None (occurrence: None)
  Receive Date: 20100422
  Receipt Date: 20100421
  Transmission Date: 20101027
  Serious: Yes (Other)
  Sender: FDA-Public Use
  Company Number: AU-ROXANE LABORATORIES, INC.-2010-RO-00449RO

PATIENT
  Age: 57 Year
  Sex: Male

DRUGS (5)
  1. DEXAMETHASONE [Suspect]
     Indication: PROPHYLAXIS
     Dosage: 16 MG
  2. DEXAMETHASONE [Suspect]
     Dosage: 8 MG
     Route: 042
  3. DOCETAXEL [Suspect]
     Indication: PROSTATE CANCER
     Route: 042
  4. PREDNISOLONE [Suspect]
     Indication: PROSTATE CANCER
     Dosage: 10 MG
     Route: 048
  5. TERBINAFINE HCL [Concomitant]
     Indication: TRICHOPHYTOSIS
     Dosage: 250 MG
     Route: 048

REACTIONS (2)
  - DISEASE PROGRESSION [None]
  - TRICHOPHYTOSIS [None]
